FAERS Safety Report 10109121 (Version 2)
Quarter: 2014Q2

REPORT INFORMATION
  Report Type: Spontaneous
  Country: IT (occurrence: IT)
  Receive Date: 20140425
  Receipt Date: 20140506
  Transmission Date: 20141212
  Serious: Yes (Death)
  Sender: FDA-Public Use
  Company Number: IT-JNJFOC-20140415431

PATIENT
  Sex: 0

DRUGS (9)
  1. DOXORUBICIN HYDROCHLORIDE [Suspect]
     Indication: PLASMA CELL MYELOMA
     Dosage: DAYS 1 AND 15
     Route: 042
  2. BORTEZOMIB [Suspect]
     Indication: PLASMA CELL MYELOMA
     Dosage: DAYS 1, 4, 8, 15
     Route: 042
  3. DEXAMETHASONE [Suspect]
     Indication: PLASMA CELL MYELOMA
     Dosage: DAYS 1, 4, 8, 15
     Route: 042
  4. CYCLOPHOSPHAMIDE [Suspect]
     Indication: PLASMA CELL MYELOMA
     Dosage: FOR 15 DAYS
     Route: 048
  5. BISPHOSPHONATES [Concomitant]
     Route: 065
  6. ACYCLOVIR [Concomitant]
     Indication: ANTIVIRAL PROPHYLAXIS
     Route: 065
  7. COTRIMOXAZOLE [Concomitant]
     Indication: ANTIBIOTIC THERAPY
     Route: 065
  8. ERYTHROPOIETIN [Concomitant]
     Indication: PALLIATIVE CARE
     Route: 065
  9. GRANULOCYTE COLONY-STIMULATING FACTOR [Concomitant]
     Indication: PALLIATIVE CARE
     Route: 065

REACTIONS (1)
  - Infection [Fatal]
